FAERS Safety Report 8920923 (Version 1)
Quarter: 2012Q4

REPORT INFORMATION
  Report Type: 
  Country: US (occurrence: US)
  Receive Date: 20121122
  Receipt Date: 20121122
  Transmission Date: 20130627
  Serious: No
  Sender: FDA-Public Use
  Company Number: US-PFIZER INC-2012288239

PATIENT
  Age: 69 Year
  Sex: Female
  Weight: 68.03 kg

DRUGS (2)
  1. INLYTA [Suspect]
     Indication: RENAL CANCER METASTATIC
     Dosage: 5 mg, 2x/day
     Dates: start: 20120906, end: 201210
  2. TRAZODONE [Concomitant]
     Indication: SLEEP DISORDER
     Dosage: UNK

REACTIONS (7)
  - Dyspnoea [Unknown]
  - Lung disorder [Unknown]
  - Vomiting [Unknown]
  - Decreased appetite [Unknown]
  - Nausea [Unknown]
  - Disease progression [Unknown]
  - Renal cancer metastatic [Unknown]
